FAERS Safety Report 5612089-2 (Version None)
Quarter: 2008Q1

REPORT INFORMATION
  Report Type: 
  Country: None (occurrence: None)
  Receive Date: 20080204
  Receipt Date: 20080125
  Transmission Date: 20080703
  Serious: Yes (Hospitalization)
  Sender: FDA-Public Use
  Company Number: PHHO2008TW01026

PATIENT
  Age: 42 Year
  Sex: Female
  Weight: 66 kg

DRUGS (4)
  1. CERTICAN [Suspect]
     Indication: RENAL TRANSPLANT
  2. NEORAL [Suspect]
     Indication: RENAL TRANSPLANT
     Dosage: 300 MG/DAILY
     Route: 048
     Dates: start: 20071212
  3. MYFORTIC [Concomitant]
     Indication: RENAL TRANSPLANT
     Dosage: 1440 MG/DAILY
     Route: 048
     Dates: start: 20071212
  4. PREDNISOLONE [Concomitant]
     Indication: RENAL TRANSPLANT
     Dosage: 20 MG/DAILY
     Route: 048
     Dates: start: 20071212

REACTIONS (4)
  - HERPES ZOSTER [None]
  - OVERDOSE [None]
  - PAIN IN EXTREMITY [None]
  - THORACIC OUTLET SYNDROME [None]
